FAERS Safety Report 9392088 (Version 1)
Quarter: 2013Q3

REPORT INFORMATION
  Report Type: Spontaneous
  Country: US (occurrence: US)
  Receive Date: 20130709
  Receipt Date: 20130709
  Transmission Date: 20140515
  Serious: Yes (Death)
  Sender: FDA-Public Use
  Company Number: US-BAXTER-2012BAX002130

PATIENT
  Age: 14 Year
  Sex: Female

DRUGS (4)
  1. CEFTRIAXONE INJECTION, USP (IN DEXTROSE) [Suspect]
     Route: 042
     Dates: start: 199701
  2. CEFTRIAXONE INJECTION, USP (IN DEXTROSE) [Suspect]
     Route: 042
  3. CEFTRIAXONE INJECTION, USP (IN DEXTROSE) [Suspect]
     Route: 042
     Dates: start: 199703
  4. CEFTRIAXONE INJECTION, USP (IN DEXTROSE) [Suspect]
     Indication: PNEUMONIA
     Route: 042

REACTIONS (2)
  - Intravascular haemolysis [Fatal]
  - Disseminated intravascular coagulation [Fatal]
